FAERS Safety Report 19398923 (Version 1)
Quarter: 2021Q2

REPORT INFORMATION
  Report Type: Spontaneous
  Country: US (occurrence: US)
  Receive Date: 20210610
  Receipt Date: 20210610
  Transmission Date: 20210717
  Serious: Yes (Other)
  Sender: FDA-Public Use
  Company Number: None

PATIENT
  Age: 57 Year
  Sex: Female
  Weight: 47.25 kg

DRUGS (17)
  1. NORCO PRN [Concomitant]
  2. FLEXERIL [Concomitant]
     Active Substance: CYCLOBENZAPRINE HYDROCHLORIDE
  3. MAXALT PRN [Concomitant]
  4. MVI [Concomitant]
     Active Substance: VITAMINS
  5. SINGULAIR [Concomitant]
     Active Substance: MONTELUKAST SODIUM
  6. CIMZIA [Suspect]
     Active Substance: CERTOLIZUMAB PEGOL
     Indication: RHEUMATOID ARTHRITIS
     Dosage: ?          OTHER FREQUENCY:EVERY 4 WEEKS;?
     Route: 058
     Dates: start: 20201026, end: 20210608
  7. TRIAMCINOLONE [Concomitant]
     Active Substance: TRIAMCINOLONE
  8. FLONASE NASAL [Concomitant]
  9. MELOXICAM 15MG [Concomitant]
     Active Substance: MELOXICAM
  10. ASA 81MG [Concomitant]
     Active Substance: ASPIRIN
  11. PEPCID 20MG [Concomitant]
  12. PREDNISONE. [Concomitant]
     Active Substance: PREDNISONE
  13. HYDROXYZINE 10?30MG [Concomitant]
  14. BUSPAR 5MG [Concomitant]
  15. ERGOCALCIFEROL. [Concomitant]
     Active Substance: ERGOCALCIFEROL
  16. ACTONEL 35MG [Concomitant]
  17. CLARITIN [Concomitant]
     Active Substance: LORATADINE

REACTIONS (5)
  - Lupus-like syndrome [None]
  - Pruritus [None]
  - Rash erythematous [None]
  - Erythema [None]
  - Swelling [None]

NARRATIVE: CASE EVENT DATE: 20210609
